FAERS Safety Report 8345188-5 (Version None)
Quarter: 2012Q2

REPORT INFORMATION
  Report Type: 
  Country: None (occurrence: None)
  Receive Date: 20120508
  Receipt Date: 20120430
  Transmission Date: 20120825
  Serious: Yes (Death, Hospitalization)
  Sender: FDA-Public Use
  Company Number: US-ACTELION-A-NJ2012-62918

PATIENT

DRUGS (4)
  1. FLOLAN [Concomitant]
  2. VENTAVIS [Suspect]
     Indication: PULMONARY ARTERIAL HYPERTENSION
     Dosage: UNK
     Route: 055
     Dates: start: 20110217, end: 20120310
  3. TRACLEER [Suspect]
     Indication: PULMONARY ARTERIAL HYPERTENSION
     Dosage: UNK
     Route: 048
     Dates: start: 20110308, end: 20120402
  4. COUMADIN [Concomitant]

REACTIONS (4)
  - MECHANICAL VENTILATION [None]
  - PNEUMOTHORAX [None]
  - RESPIRATORY FAILURE [None]
  - ENDOTRACHEAL INTUBATION [None]
